FAERS Safety Report 15994074 (Version 1)
Quarter: 2019Q1

REPORT INFORMATION
  Report Type: Spontaneous
  Country: FR (occurrence: FR)
  Receive Date: 20190222
  Receipt Date: 20190222
  Transmission Date: 20190418
  Serious: Yes (Death)
  Sender: FDA-Public Use
  Company Number: FR-ORION CORPORATION ORION PHARMA-19_00005523

PATIENT
  Age: 84 Year
  Sex: Female
  Weight: 42 kg

DRUGS (3)
  1. PREDNISONE. [Concomitant]
     Active Substance: PREDNISONE
     Indication: ARTHRITIS
     Route: 065
     Dates: start: 20170219, end: 20180708
  2. IMETH [Suspect]
     Active Substance: METHOTREXATE SODIUM
     Indication: POLYARTHRITIS
     Route: 048
     Dates: start: 20180320, end: 20180708
  3. PENTASA [Suspect]
     Active Substance: MESALAMINE
     Indication: CROHN^S DISEASE
     Route: 048
     Dates: start: 20130401

REACTIONS (3)
  - Acute respiratory distress syndrome [Fatal]
  - Interstitial lung disease [Fatal]
  - Pulmonary embolism [Fatal]

NARRATIVE: CASE EVENT DATE: 201806
